FAERS Safety Report 5623109-3 (Version None)
Quarter: 2008Q1

REPORT INFORMATION
  Report Type: 
  Country: None (occurrence: None)
  Receive Date: 20080212
  Receipt Date: 20080205
  Transmission Date: 20080703
  Serious: Yes (Hospitalization, Other)
  Sender: FDA-Public Use
  Company Number: A0696553A

PATIENT
  Age: 43 Year
  Sex: Female
  Weight: 79.5 kg

DRUGS (4)
  1. LAMICTAL [Suspect]
     Indication: BIPOLAR DISORDER
     Dosage: 300MG PER DAY
     Route: 048
     Dates: start: 20061101, end: 20071117
  2. SEROQUEL [Concomitant]
  3. CLONOPIN [Concomitant]
  4. SYNTHROID [Concomitant]

REACTIONS (14)
  - ARTHRALGIA [None]
  - DYSPHAGIA [None]
  - FATIGUE [None]
  - HEPATIC ENZYME INCREASED [None]
  - HYPERSOMNIA [None]
  - INFLAMMATION [None]
  - PHARYNGOLARYNGEAL PAIN [None]
  - PROTEIN C INCREASED [None]
  - PRURITUS [None]
  - PYREXIA [None]
  - RASH [None]
  - RASH ERYTHEMATOUS [None]
  - RED BLOOD CELL SEDIMENTATION RATE INCREASED [None]
  - SYSTEMIC LUPUS ERYTHEMATOSUS [None]
